FAERS Safety Report 12426702 (Version 1)
Quarter: 2016Q2

REPORT INFORMATION
  Report Type: Spontaneous
  Country: US (occurrence: US)
  Receive Date: 20160601
  Receipt Date: 20160601
  Transmission Date: 20160815
  Serious: No
  Sender: FDA-Public Use
  Company Number: US-ELI_LILLY_AND_COMPANY-US201605007262

PATIENT
  Sex: Female

DRUGS (5)
  1. HUMALOG MIX50/50 [Suspect]
     Active Substance: INSULIN LISPRO
     Dosage: UNK, BID
     Route: 065
  2. LITHIUM. [Concomitant]
     Active Substance: LITHIUM
  3. LOVASTATIN. [Concomitant]
     Active Substance: LOVASTATIN
  4. ATORVASTATIN [Concomitant]
     Active Substance: ATORVASTATIN
  5. HUMALOG MIX50/50 [Suspect]
     Active Substance: INSULIN LISPRO
     Indication: TYPE 2 DIABETES MELLITUS
     Dosage: UNK, BID
     Route: 065
     Dates: start: 1991

REACTIONS (4)
  - Hypertension [Unknown]
  - Visual acuity reduced [Unknown]
  - Vitreous floaters [Unknown]
  - Bipolar disorder [Unknown]
